FAERS Safety Report 24998047 (Version 2)
Quarter: 2025Q2

REPORT INFORMATION
  Report Type: Spontaneous
  Country: US (occurrence: US)
  Receive Date: 20250222
  Receipt Date: 20250510
  Transmission Date: 20250717
  Serious: No
  Sender: SANOFI AVENTIS
  Company Number: US-SA-2025SA042714

PATIENT
  Age: 47 Year
  Sex: Female

DRUGS (13)
  1. DUPIXENT [Suspect]
     Active Substance: DUPILUMAB
     Indication: Asthma
     Route: 058
     Dates: start: 20250107, end: 20250107
  2. DUPIXENT [Suspect]
     Active Substance: DUPILUMAB
     Dosage: 300 MG, QOW
     Route: 058
     Dates: start: 202501
  3. AZELASTINE [Concomitant]
     Active Substance: AZELASTINE
  4. FLUTICASONE [Concomitant]
     Active Substance: FLUTICASONE
  5. LEVOCETIRIZINE [Concomitant]
     Active Substance: LEVOCETIRIZINE
  6. MOMETASONE [Concomitant]
     Active Substance: MOMETASONE
  7. ODACTRA [Concomitant]
     Active Substance: DERMATOPHAGOIDES FARINAE\DERMATOPHAGOIDES PTERONYSSINUS
  8. OMEPRAZOLE [Concomitant]
     Active Substance: OMEPRAZOLE
  9. SPIRIVA [Concomitant]
     Active Substance: TIOTROPIUM BROMIDE MONOHYDRATE
  10. SYMBICORT [Concomitant]
     Active Substance: BUDESONIDE\FORMOTEROL FUMARATE DIHYDRATE
  11. FOLIC ACID [Concomitant]
     Active Substance: FOLIC ACID
  12. METHOTREXATE [Concomitant]
     Active Substance: METHOTREXATE
  13. NAPROXEN [Concomitant]
     Active Substance: NAPROXEN

REACTIONS (3)
  - Pain [Not Recovered/Not Resolved]
  - Infection [Not Recovered/Not Resolved]
  - Asthma [Unknown]

NARRATIVE: CASE EVENT DATE: 20250101
